FAERS Safety Report 19795374 (Version 1)
Quarter: 2021Q3

REPORT INFORMATION
  Report Type: Spontaneous
  Country: US (occurrence: US)
  Receive Date: 20210907
  Receipt Date: 20210907
  Transmission Date: 20211014
  Serious: No
  Sender: FDA-Public Use
  Company Number: US-ALVOGEN-2021-ALVOGEN-117428

PATIENT
  Age: 74 Year
  Sex: Female
  Weight: 78.93 kg

DRUGS (6)
  1. METHENAMINE HIPPURATE. [Suspect]
     Active Substance: METHENAMINE HIPPURATE
     Indication: URINARY TRACT INFECTION
  2. FISH OIL/GLYCINE MAX SEED OIL/LINUM USITATISSIMUM OIL/VITAMIN E NOS [Concomitant]
     Indication: DRY EYE
     Dosage: ONCE OR TWICE DAILY. DOSE UNKNOWN
  3. ASCORBIC ACID/ZINC [Concomitant]
     Active Substance: ASCORBIC ACID\ZINC
     Indication: VITAMIN SUPPLEMENTATION
     Dosage: ONE TABLET DAILY
  4. LEVOTHYROXINE SODIUM. [Concomitant]
     Active Substance: LEVOTHYROXINE SODIUM
     Indication: PRODUCT USED FOR UNKNOWN INDICATION
     Dosage: 1.12MG DAILY
  5. ASCORBIC ACID/CUPRIC OXIDE/DL?ALPHA TOCOPHERYL ACETATE/XANTOFYL/ZEAXANTHIN/ZINC OXIDE [Concomitant]
     Indication: VITAMIN SUPPLEMENTATION
     Dosage: ONE TABLET TWICE DAILY.
  6. SIMVASTATIN. [Concomitant]
     Active Substance: SIMVASTATIN
     Indication: BLOOD CHOLESTEROL

REACTIONS (1)
  - Hepatic enzyme increased [Unknown]
